FAERS Safety Report 24791230 (Version 1)
Quarter: 2024Q4

REPORT INFORMATION
  Report Type: Spontaneous
  Country: CO (occurrence: CO)
  Receive Date: 20241230
  Receipt Date: 20241230
  Transmission Date: 20250115
  Serious: Yes (Other)
  Sender: NOVO NORDISK
  Company Number: CO-NOVOPROD-1341235

PATIENT
  Sex: Male
  Weight: 100 kg

DRUGS (1)
  1. SAXENDA [Suspect]
     Active Substance: LIRAGLUTIDE
     Indication: Obesity
     Dosage: 0.6 MG, QD
     Route: 058

REACTIONS (3)
  - Fall [Unknown]
  - Head injury [Unknown]
  - Back pain [Unknown]

NARRATIVE: CASE EVENT DATE: 20241214
